FAERS Safety Report 23785311 (Version 2)
Quarter: 2024Q2

REPORT INFORMATION
  Report Type: Spontaneous
  Country: BR (occurrence: BR)
  Receive Date: 20240425
  Receipt Date: 20240604
  Transmission Date: 20240715
  Serious: Yes (Other)
  Sender: FDA-Public Use
  Company Number: BR-002147023-NVSC2024BR087201

PATIENT
  Sex: Male

DRUGS (2)
  1. ENTRESTO [Suspect]
     Active Substance: SACUBITRIL\VALSARTAN
     Indication: Product used for unknown indication
     Dosage: 50 MG ALU (2X14)
     Route: 065
  2. ENTRESTO [Suspect]
     Active Substance: SACUBITRIL\VALSARTAN
     Dosage: 100 MG (2X14)
     Route: 065

REACTIONS (6)
  - Cerebrovascular accident [Unknown]
  - Cardiac disorder [Unknown]
  - Wrong technique in product usage process [Unknown]
  - Product physical issue [Unknown]
  - Product leakage [Unknown]
  - Poor quality product administered [Unknown]
